FAERS Safety Report 24019532 (Version 1)
Quarter: 2024Q2

REPORT INFORMATION
  Report Type: Spontaneous
  Country: US (occurrence: None)
  Receive Date: 20240626
  Receipt Date: 20240626
  Transmission Date: 20240716
  Serious: Yes (Other)
  Sender: FDA-Public Use
  Company Number: None

PATIENT
  Age: 62 Year
  Sex: Male

DRUGS (1)
  1. LENALIDOMIDE [Suspect]
     Active Substance: LENALIDOMIDE
     Indication: Plasma cell myeloma
     Route: 048
     Dates: start: 20200106, end: 20240325

REACTIONS (4)
  - Neuropathy peripheral [None]
  - Therapy interrupted [None]
  - Toxicity to various agents [None]
  - Plasma cell myeloma recurrent [None]

NARRATIVE: CASE EVENT DATE: 20240626
